FAERS Safety Report 24655271 (Version 1)
Quarter: 2024Q4

REPORT INFORMATION
  Report Type: Spontaneous
  Country: PL (occurrence: PL)
  Receive Date: 20241123
  Receipt Date: 20241123
  Transmission Date: 20250115
  Serious: Yes (Hospitalization, Other)
  Sender: ABBVIE
  Company Number: PL-ABBVIE-6010294

PATIENT
  Age: 74 Year
  Sex: Female

DRUGS (3)
  1. VENETOCLAX [Suspect]
     Active Substance: VENETOCLAX
     Indication: Acute myeloid leukaemia
     Dosage: 400 MILLIGRAM
     Route: 048
  2. HYDROXYUREA [Concomitant]
     Active Substance: HYDROXYUREA
     Indication: Chemotherapy
     Dosage: 4-6 HOURS/PER DAY
  3. RASBURICASE [Concomitant]
     Active Substance: RASBURICASE
     Indication: Blood uric acid increased
     Dosage: 0.2 MG/KG
     Route: 042

REACTIONS (7)
  - Bone marrow failure [Recovered/Resolved]
  - Acute leukaemia [Unknown]
  - Thrombocytopenia [Recovered/Resolved]
  - Anaemia [Recovered/Resolved]
  - Neutropenia [Unknown]
  - Neutropenia [Recovered/Resolved]
  - White blood cell count decreased [Unknown]
